FAERS Safety Report 4725982-X (Version None)
Quarter: 2005Q3

REPORT INFORMATION
  Report Type: 
  Country: None (occurrence: None)
  Receive Date: 20050727
  Receipt Date: 20050131
  Transmission Date: 20060218
  Serious: Yes (Hospitalization, Disabling)
  Sender: FDA-Public Use
  Company Number: DE-GLAXOSMITHKLINE-D0045787A

PATIENT
  Age: 52 Year
  Sex: Female
  Weight: 81 kg

DRUGS (5)
  1. AVANDIA [Suspect]
     Dosage: 1TAB PER DAY
     Route: 048
     Dates: end: 20050101
  2. ACTOS [Suspect]
     Route: 048
     Dates: end: 20041101
  3. GLUCOPHAGE [Concomitant]
     Dosage: 800MG TWICE PER DAY
     Route: 048
     Dates: start: 19970101
  4. AMARYL [Concomitant]
     Dosage: 4MG PER DAY
     Route: 048
     Dates: start: 19970101
  5. L-THYROXINE [Concomitant]
     Route: 048

REACTIONS (4)
  - OPTIC ISCHAEMIC NEUROPATHY [None]
  - PAPILLITIS [None]
  - VISION BLURRED [None]
  - VISUAL ACUITY REDUCED [None]
